FAERS Safety Report 11103847 (Version 1)
Quarter: 2015Q2

REPORT INFORMATION
  Report Type: Spontaneous
  Country: CN (occurrence: CN)
  Receive Date: 20150511
  Receipt Date: 20150511
  Transmission Date: 20150821
  Serious: Yes (Other)
  Sender: FDA-Public Use
  Company Number: CN-BAYER-2015-213854

PATIENT
  Sex: Female

DRUGS (1)
  1. MIRENA [Suspect]
     Active Substance: LEVONORGESTREL
     Dosage: 20 MCG/24HR, UNK
     Route: 015
     Dates: start: 20150507

REACTIONS (4)
  - Loss of consciousness [None]
  - Abdominal pain [None]
  - Secretion discharge [None]
  - Abdominal distension [None]

NARRATIVE: CASE EVENT DATE: 20150509
